FAERS Safety Report 6590654-6 (Version None)
Quarter: 2010Q1

REPORT INFORMATION
  Report Type: 
  Country: None (occurrence: None)
  Receive Date: 20100219
  Receipt Date: 20100217
  Transmission Date: 20100710
  Serious: Yes (Hospitalization)
  Sender: FDA-Public Use
  Company Number: A0845030A

PATIENT
  Age: 52 Year
  Sex: Female
  Weight: 77.3 kg

DRUGS (1)
  1. AVANDIA [Suspect]
     Indication: DIABETES MELLITUS
     Route: 048
     Dates: start: 20000121, end: 20070501

REACTIONS (4)
  - BLINDNESS [None]
  - RETINAL OEDEMA [None]
  - RETINOPATHY [None]
  - VISION BLURRED [None]
